FAERS Safety Report 5336894-5 (Version None)
Quarter: 2007Q2

REPORT INFORMATION
  Report Type: 
  Country: None (occurrence: None)
  Receive Date: 20070529
  Receipt Date: 20070521
  Transmission Date: 20071010
  Serious: Yes (Other)
  Sender: FDA-Public Use
  Company Number: AU-AVENTIS-200714161GDDC

PATIENT
  Age: 32 Year
  Sex: Female

DRUGS (2)
  1. LANTUS [Suspect]
     Dates: start: 20060901
  2. AUTOPEN 24 [Suspect]

REACTIONS (1)
  - PANCREATITIS [None]
